FAERS Safety Report 11514867 (Version 1)
Quarter: 2015Q3

REPORT INFORMATION
  Report Type: Spontaneous
  Country: CH (occurrence: CH)
  Receive Date: 20150916
  Receipt Date: 20150916
  Transmission Date: 20151125
  Serious: Yes (Other)
  Sender: FDA-Public Use
  Company Number: CH-ASTRAZENECA-2015SE89146

PATIENT
  Age: 802 Month
  Sex: Female

DRUGS (5)
  1. TAMOXIFEN [Suspect]
     Active Substance: TAMOXIFEN
     Route: 048
     Dates: start: 200603, end: 201104
  2. EXEMESTANE. [Concomitant]
     Active Substance: EXEMESTANE
     Dates: start: 2007
  3. PACLITAXEL. [Concomitant]
     Active Substance: PACLITAXEL
     Dosage: (WEEKLY) X12
     Dates: start: 201303, end: 201305
  4. FULVESTRANT [Suspect]
     Active Substance: FULVESTRANT
     Indication: BREAST CANCER FEMALE
     Route: 030
     Dates: start: 201307, end: 201401
  5. DENOSUMAB [Concomitant]
     Active Substance: DENOSUMAB
     Dates: start: 201303

REACTIONS (5)
  - Metastases to bone [Unknown]
  - Metastases to lymph nodes [Unknown]
  - Metastases to the mediastinum [Unknown]
  - Malignant neoplasm progression [Unknown]
  - Metastases to liver [Unknown]

NARRATIVE: CASE EVENT DATE: 201301
